FAERS Safety Report 8145786-8 (Version None)
Quarter: 2012Q1

REPORT INFORMATION
  Report Type: 
  Country: None (occurrence: None)
  Receive Date: 20120217
  Receipt Date: 20110428
  Transmission Date: 20120608
  Serious: No
  Sender: FDA-Public Use
  Company Number: US-ABBOTT-11P-163-0722322-00

PATIENT
  Sex: Female
  Weight: 61.29 kg

DRUGS (5)
  1. LISINOPRIL [Concomitant]
     Indication: PRODUCT USED FOR UNKNOWN INDICATION
  2. SIMCOR [Suspect]
     Indication: BLOOD TRIGLYCERIDES INCREASED
     Dosage: 100/20 MG AT BEDTIME
     Dates: start: 20080101
  3. SIMCOR [Suspect]
     Dates: start: 20110201
  4. ASPIRIN [Concomitant]
     Indication: PRODUCT USED FOR UNKNOWN INDICATION
  5. ACTINOL [Concomitant]
     Indication: OSTEOPOROSIS

REACTIONS (4)
  - INSOMNIA [None]
  - PRURITUS [None]
  - PARAESTHESIA [None]
  - FLUSHING [None]
